FAERS Safety Report 7836476 (Version 2)
Quarter: 2020Q3

REPORT INFORMATION
  Report Type: Report from Study
  Country: US (occurrence: US)
  Receive Date: 20110302
  Receipt Date: 20110311
  Transmission Date: 20201104
  Serious: Yes (Other)
  Sender: FDA-Public Use
  Company Number: US-JNJFOC-20090706512

PATIENT
  Age: 61 Year
  Sex: Male
  Weight: 117 kg

DRUGS (30)
  1. CNTO 1275 [Suspect]
     Active Substance: USTEKINUMAB
     Route: 058
  2. CNTO 1275 [Suspect]
     Active Substance: USTEKINUMAB
     Route: 058
  3. CNTO 1275 [Suspect]
     Active Substance: USTEKINUMAB
     Route: 058
  4. CNTO 1275 [Suspect]
     Active Substance: USTEKINUMAB
     Route: 058
  5. PLACEBO [Suspect]
     Active Substance: UNSPECIFIED INGREDIENT
     Indication: PSORIASIS
  6. CNTO 1275 [Suspect]
     Active Substance: USTEKINUMAB
     Route: 058
  7. ALLOPURINOL. [Concomitant]
     Active Substance: ALLOPURINOL
     Route: 048
  8. CNTO 1275 [Suspect]
     Active Substance: USTEKINUMAB
     Indication: PSORIASIS
     Route: 058
  9. CNTO 1275 [Suspect]
     Active Substance: USTEKINUMAB
     Route: 058
  10. CNTO 1275 [Suspect]
     Active Substance: USTEKINUMAB
     Route: 058
  11. CNTO 1275 [Suspect]
     Active Substance: USTEKINUMAB
     Route: 058
  12. CNTO 1275 [Suspect]
     Active Substance: USTEKINUMAB
     Route: 058
  13. CNTO 1275 [Suspect]
     Active Substance: USTEKINUMAB
     Route: 058
  14. CNTO 1275 [Suspect]
     Active Substance: USTEKINUMAB
     Route: 058
  15. ALEVE COLD + SINUS [Concomitant]
     Active Substance: NAPROXEN SODIUM\PSEUDOEPHEDRINE HYDROCHLORIDE
     Route: 048
  16. CLONIDINE. [Concomitant]
     Active Substance: CLONIDINE
     Route: 048
  17. LOVASTATIN. [Concomitant]
     Active Substance: LOVASTATIN
     Route: 048
  18. CNTO 1275 [Suspect]
     Active Substance: USTEKINUMAB
     Route: 058
  19. CNTO 1275 [Suspect]
     Active Substance: USTEKINUMAB
     Route: 058
  20. CNTO 1275 [Suspect]
     Active Substance: USTEKINUMAB
     Route: 058
  21. CNTO 1275 [Suspect]
     Active Substance: USTEKINUMAB
     Route: 058
  22. CNTO 1275 [Suspect]
     Active Substance: USTEKINUMAB
     Route: 058
  23. PLACEBO [Suspect]
     Active Substance: UNSPECIFIED INGREDIENT
  24. ASPIRIN. [Concomitant]
     Active Substance: ASPIRIN
     Route: 048
  25. CNTO 1275 [Suspect]
     Active Substance: USTEKINUMAB
     Route: 058
  26. ATENOLOL. [Concomitant]
     Active Substance: ATENOLOL
     Route: 048
  27. CNTO 1275 [Suspect]
     Active Substance: USTEKINUMAB
     Route: 058
  28. CNTO 1275 [Suspect]
     Active Substance: USTEKINUMAB
     Route: 058
  29. CNTO 1275 [Suspect]
     Active Substance: USTEKINUMAB
     Route: 058
  30. HYDROCHLOROTHIAZIDE. [Concomitant]
     Active Substance: HYDROCHLOROTHIAZIDE
     Route: 048

REACTIONS (2)
  - Cardiomegaly [Not Recovered/Not Resolved]
  - Cardiac failure congestive [Recovering/Resolving]

NARRATIVE: CASE EVENT DATE: 20090714
